FAERS Safety Report 6972370-1 (Version None)
Quarter: 2010Q3

REPORT INFORMATION
  Report Type: 
  Country: None (occurrence: None)
  Receive Date: 20100909
  Receipt Date: 20100907
  Transmission Date: 20110219
  Serious: Yes (Death, Hospitalization)
  Sender: FDA-Public Use
  Company Number: PHHY2010TR47512

PATIENT
  Sex: Female

DRUGS (5)
  1. EXELON [Suspect]
     Indication: PARKINSON'S DISEASE
     Dosage: 9.5 MG/24 HRS
     Route: 062
     Dates: start: 20091221
  2. EXELON [Suspect]
     Indication: DEMENTIA
     Dosage: UNK
     Route: 062
     Dates: start: 20091118, end: 20100115
  3. STALEVO 100 [Suspect]
  4. CORASPIN [Concomitant]
     Route: 048
  5. PRAMIPEXOLE DIHYDROCHLORIDE [Concomitant]

REACTIONS (5)
  - CACHEXIA [None]
  - HYPERHIDROSIS [None]
  - PYREXIA [None]
  - SOMNOLENCE [None]
  - URINARY TRACT INFECTION [None]
